FAERS Safety Report 17010870 (Version 1)
Quarter: 2019Q4

REPORT INFORMATION
  Report Type: Spontaneous
  Country: US (occurrence: US)
  Receive Date: 20191001
  Receipt Date: 20191001
  Transmission Date: 20200122
  Serious: Yes (Other)
  Sender: FDA-Public Use
  Company Number: None

PATIENT
  Age: 38 Year
  Sex: Male
  Weight: 83.46 kg

DRUGS (6)
  1. APRAZOLAM [Concomitant]
  2. ATENOLOL. [Concomitant]
     Active Substance: ATENOLOL
  3. ESOMEPRAZOLE MAG 40MG [Suspect]
     Active Substance: ESOMEPRAZOLE MAGNESIUM
     Indication: GASTROOESOPHAGEAL REFLUX DISEASE
     Route: 048
     Dates: start: 20190918, end: 20190923
  4. ESOMEPRAZOLE MAG 40MG [Suspect]
     Active Substance: ESOMEPRAZOLE MAGNESIUM
     Indication: BARRETT^S OESOPHAGUS
     Route: 048
     Dates: start: 20190918, end: 20190923
  5. LIPITOR [Concomitant]
     Active Substance: ATORVASTATIN CALCIUM
  6. TRILIPIX [Concomitant]
     Active Substance: FENOFIBRIC ACID

REACTIONS (5)
  - Paraesthesia oral [None]
  - Dizziness [None]
  - Balance disorder [None]
  - Vomiting [None]
  - Hypoaesthesia oral [None]

NARRATIVE: CASE EVENT DATE: 20190918
